FAERS Safety Report 7375966-0 (Version None)
Quarter: 2011Q1

REPORT INFORMATION
  Report Type: 
  Country: None (occurrence: None)
  Receive Date: 20110317
  Receipt Date: 20110223
  Transmission Date: 20110831
  Serious: Yes (Hospitalization, Other)
  Sender: FDA-Public Use
  Company Number: JPI-P-010561

PATIENT
  Age: 61 Year
  Sex: Male

DRUGS (7)
  1. OMEPRAZOLE [Concomitant]
  2. ATORVASTATIN CALCIUM [Concomitant]
  3. MODAFINIL [Concomitant]
  4. AMLODIPINE BESILATE [Concomitant]
  5. ATENOLOL [Concomitant]
  6. XYREM [Suspect]
     Indication: NARCOLEPSY
     Dosage: 8 GM (4 GM, 2 IN 1 D), ORAL
     Route: 048
     Dates: start: 20100129, end: 20110216
  7. RAMIPRIL [Concomitant]

REACTIONS (9)
  - ARTHRALGIA [None]
  - ABNORMAL DREAMS [None]
  - MUSCLE TIGHTNESS [None]
  - MEMORY IMPAIRMENT [None]
  - INSOMNIA [None]
  - CONFUSIONAL STATE [None]
  - CRYING [None]
  - ENURESIS [None]
  - RENAL NEOPLASM [None]
